FAERS Safety Report 18033573 (Version 2)
Quarter: 2021Q1

REPORT INFORMATION
  Report Type: Spontaneous
  Country: US (occurrence: US)
  Receive Date: 20200716
  Receipt Date: 20210317
  Transmission Date: 20210419
  Serious: Yes (Other)
  Sender: FDA-Public Use
  Company Number: US-SA-2020SA182134

PATIENT
  Age: 68 Year
  Sex: Male

DRUGS (1)
  1. ZANTAC [Suspect]
     Active Substance: RANITIDINE HYDROCHLORIDE
     Indication: DYSPEPSIA
     Dosage: 150 MG, QD
     Dates: start: 198301, end: 201901

REACTIONS (4)
  - Colorectal cancer [Unknown]
  - Neoplasm malignant [Unknown]
  - Malignant melanoma [Unknown]
  - Renal cancer [Unknown]

NARRATIVE: CASE EVENT DATE: 20100101
